FAERS Safety Report 6781333-0 (Version None)
Quarter: 2010Q2

REPORT INFORMATION
  Report Type: 
  Country: None (occurrence: None)
  Receive Date: 20100621
  Receipt Date: 20100610
  Transmission Date: 20101027
  Serious: Yes (Other)
  Sender: FDA-Public Use
  Company Number: US-NOVOPROD-305727

PATIENT
  Sex: Female
  Weight: 92.971 kg

DRUGS (10)
  1. NORDITROPIN NORDIFLEX [Suspect]
     Indication: HYPOPITUITARISM
     Dosage: 0.2 IU, QD
     Route: 058
     Dates: start: 20030101, end: 20090901
  2. NORDITROPIN NORDIFLEX [Suspect]
     Indication: SURGERY
     Dosage: 0.3 MG, QD
     Route: 058
     Dates: start: 20100101
  3. LOTENSIN                           /00498401/ [Concomitant]
     Indication: HYPERTENSION
     Dosage: 40 MG, BID
  4. SYNTHROID [Concomitant]
     Indication: HYPOPITUITARISM
     Dosage: 100 UG, UNK
  5. CALCITRIOL [Concomitant]
     Indication: DRUG USE FOR UNKNOWN INDICATION
     Dosage: UNK
  6. FUROSEMIDE [Concomitant]
     Indication: HYPERTENSION
     Dosage: UNK
  7. ALLOPURINOL [Concomitant]
     Indication: GOUT
     Dosage: UNK
  8. IRON [Concomitant]
     Indication: DRUG USE FOR UNKNOWN INDICATION
  9. VITAMIN B-12 [Concomitant]
     Indication: DRUG USE FOR UNKNOWN INDICATION
     Dosage: UNK
  10. MODICON [Concomitant]
     Indication: DRUG USE FOR UNKNOWN INDICATION

REACTIONS (1)
  - THROMBOSIS [None]
